FAERS Safety Report 5513915-8 (Version None)
Quarter: 2007Q4

REPORT INFORMATION
  Report Type: 
  Country: None (occurrence: None)
  Receive Date: 20071113
  Receipt Date: 20071105
  Transmission Date: 20080405
  Serious: Yes (Hospitalization)
  Sender: FDA-Public Use
  Company Number: DE-JNJFOC-20050400473

PATIENT
  Sex: Female
  Weight: 75 kg

DRUGS (5)
  1. INFLIXIMAB [Suspect]
     Indication: CROHN'S DISEASE
     Route: 042
  2. PENTASA [Concomitant]
     Indication: CROHN'S DISEASE
  3. COLINSAN [Concomitant]
     Indication: CROHN'S DISEASE
  4. MONOSTEP [Concomitant]
     Indication: CONTRACEPTION
  5. PANTOPRAZOLE SODIUM [Concomitant]
     Indication: GASTROINTESTINAL DISORDER THERAPY

REACTIONS (1)
  - SMALL INTESTINE CARCINOMA [None]
